FAERS Safety Report 8590822-8 (Version None)
Quarter: 2012Q3

REPORT INFORMATION
  Report Type: 
  Country: None (occurrence: None)
  Receive Date: 20120813
  Receipt Date: 20120809
  Transmission Date: 20120928
  Serious: Yes (Hospitalization, Other)
  Sender: FDA-Public Use
  Company Number: SI-ROCHE-1099321

PATIENT
  Age: 71 Year
  Sex: Female
  Weight: 67 kg

DRUGS (7)
  1. BISOPROLOL FUMARATE [Concomitant]
     Dates: start: 20120101
  2. MEDROL [Concomitant]
     Dates: start: 20100101
  3. ZELBORAF [Suspect]
     Indication: MALIGNANT MELANOMA
     Dosage: LAST DOSE PRIOR TO SAE: 30/JUL/2012
     Route: 048
     Dates: start: 20120604, end: 20120730
  4. ENAP-H [Concomitant]
     Dates: start: 20070101
  5. BISOPROLOL FUMARATE [Concomitant]
     Dates: start: 20120101
  6. ALPHA D3 [Concomitant]
     Dates: start: 20100101
  7. ACTIVAL [Concomitant]
     Dates: start: 20020101

REACTIONS (2)
  - NEPHROPATHY [None]
  - SQUAMOUS CELL CARCINOMA OF SKIN [None]
